FAERS Safety Report 10798664 (Version 7)
Quarter: 2015Q2

REPORT INFORMATION
  Report Type: Report from Study
  Country: CA (occurrence: CA)
  Receive Date: 20150216
  Receipt Date: 20150528
  Transmission Date: 20150821
  Serious: Yes (Other)
  Sender: FDA-Public Use
  Company Number: CA-TEVA-540980USA

PATIENT
  Age: 77 Year
  Sex: Male
  Weight: 74.3 kg

DRUGS (9)
  1. TREANDA [Suspect]
     Active Substance: BENDAMUSTINE HYDROCHLORIDE
     Dosage: 300 MG MILLIGRAM(S),CYCLICAL
     Route: 042
     Dates: start: 20141217
  2. STEMETIL [Concomitant]
     Active Substance: PROCHLORPERAZINE MALEATE
  3. DULCOLAX [Concomitant]
     Active Substance: BISACODYL OR DOCUSATE SODIUM
  4. RITUXIMAB [Suspect]
     Active Substance: RITUXIMAB
     Indication: B-CELL LYMPHOMA
     Route: 042
     Dates: start: 20141217, end: 20150129
  5. GRAVOL [Concomitant]
     Active Substance: DIMENHYDRINATE
     Dates: start: 20150120, end: 20150125
  6. NAPROXEN. [Concomitant]
     Active Substance: NAPROXEN
     Dates: start: 20140926
  7. IDELALISIB [Suspect]
     Active Substance: IDELALISIB
     Indication: B-CELL LYMPHOMA
     Dosage: 300 MILLIGRAM DAILY;
     Route: 048
     Dates: start: 20141217, end: 20150129
  8. TREANDA [Suspect]
     Active Substance: BENDAMUSTINE HYDROCHLORIDE
     Indication: B-CELL LYMPHOMA
     Dosage: 171 MG MILLIGRAM(S),CYCLICAL
     Route: 042
     Dates: start: 20141217, end: 20150129
  9. DUTASTERIDE. [Concomitant]
     Active Substance: DUTASTERIDE
     Dates: start: 200702

REACTIONS (4)
  - Alanine aminotransferase increased [Recovered/Resolved]
  - Aspartate aminotransferase increased [Recovered/Resolved]
  - Blood lactate dehydrogenase increased [Recovered/Resolved]
  - Herpes zoster [Not Recovered/Not Resolved]

NARRATIVE: CASE EVENT DATE: 20150129
